FAERS Safety Report 5956176-8 (Version None)
Quarter: 2008Q4

REPORT INFORMATION
  Report Type: 
  Country: None (occurrence: None)
  Receive Date: 20081113
  Receipt Date: 20081104
  Transmission Date: 20090506
  Serious: Yes (Hospitalization)
  Sender: FDA-Public Use
  Company Number: 2008002801

PATIENT
  Age: 73 Year
  Sex: Female

DRUGS (3)
  1. ERLOTINIB (ERLOTINIB) (TABLET) (ERLOTINIB) [Suspect]
     Indication: NON-SMALL CELL LUNG CANCER
     Dosage: (150 MG, QD), ORAL
     Route: 048
     Dates: start: 20080916, end: 20081020
  2. ERLOTINIB (ERLOTINIB) (TABLET) (ERLOTINIB) [Suspect]
     Indication: NON-SMALL CELL LUNG CANCER
     Dosage: (150 MG, QD), ORAL
     Route: 048
     Dates: start: 20081026
  3. DASATINIB [Suspect]
     Indication: NON-SMALL CELL LUNG CANCER
     Dosage: (140 MG, QD), ORAL
     Route: 048
     Dates: start: 20080924

REACTIONS (2)
  - DYSPNOEA [None]
  - PLEURAL EFFUSION [None]
